FAERS Safety Report 9102654 (Version 2)
Quarter: 2013Q1

REPORT INFORMATION
  Report Type: Spontaneous
  Country: DE (occurrence: DE)
  Receive Date: 20130219
  Receipt Date: 20130326
  Transmission Date: 20140127
  Serious: Yes (Hospitalization)
  Sender: FDA-Public Use
  Company Number: DE-UCBSA-078446

PATIENT
  Age: 24 Year
  Sex: Male
  Weight: 70 kg

DRUGS (5)
  1. XUSAL [Suspect]
     Dosage: 9 TABLETS
     Route: 048
  2. ERYBETA [Suspect]
     Dosage: 500 MG X 10 TABLETS; 5000 MG(TOTAL AMOUNT)
     Route: 048
  3. AMOXICILLIN [Suspect]
     Dosage: 1000 MG X 10 TABLET; TOTAL AMOUNT: 10000 MG
     Route: 048
  4. DOLORMIN [Suspect]
     Dosage: 10 TABLET
     Route: 048
  5. DECORTIN H [Suspect]
     Dosage: 20 MG X 10 TABLET; TOTAL 200 MG
     Route: 048

REACTIONS (4)
  - Suicide attempt [Recovered/Resolved]
  - Somnolence [Recovered/Resolved]
  - Intentional overdose [Recovered/Resolved]
  - Intentional overdose [None]
